FAERS Safety Report 8684406 (Version 2)
Quarter: 2013Q3

REPORT INFORMATION
  Report Type: Spontaneous
  Country: US (occurrence: US)
  Receive Date: 20120726
  Receipt Date: 20130814
  Transmission Date: 20140515
  Serious: Yes (Hospitalization, Other)
  Sender: FDA-Public Use
  Company Number: US-ASTRAZENECA-2012SE50250

PATIENT
  Age: 70 Year
  Sex: Female
  Weight: 84.8 kg

DRUGS (16)
  1. NEXIUM [Suspect]
     Indication: HIATUS HERNIA
     Route: 048
     Dates: start: 2008
  2. NEXIUM [Suspect]
     Indication: GASTROOESOPHAGEAL REFLUX DISEASE
     Route: 048
     Dates: start: 2008
  3. LISINOPRIL [Suspect]
     Indication: HYPERTENSION
     Route: 048
     Dates: start: 2012
  4. LISINOPRIL [Suspect]
     Indication: BLOOD PRESSURE ABNORMAL
     Route: 048
     Dates: start: 2012
  5. METOPROLOL TARTRATE [Suspect]
     Indication: HYPERTENSION
     Route: 048
  6. METOPROLOL TARTRATE [Suspect]
     Indication: CARDIAC DISORDER
     Route: 048
  7. PRILOSEC [Suspect]
     Indication: HIATUS HERNIA
     Route: 048
     Dates: end: 2012
  8. PRILOSEC [Suspect]
     Indication: GASTROOESOPHAGEAL REFLUX DISEASE
     Route: 048
     Dates: end: 2012
  9. XANAX [Concomitant]
     Indication: HYPERTENSION
     Route: 048
  10. XANAX [Concomitant]
     Indication: HYPERTENSION
     Route: 048
  11. AMLODIPINE BESYLATE [Concomitant]
     Indication: HYPERTENSION
     Dates: start: 2012
  12. NEURONTIN [Concomitant]
     Indication: HERPES ZOSTER
     Route: 048
     Dates: start: 201303
  13. NEURONTIN [Concomitant]
     Indication: HERPES ZOSTER
     Route: 048
     Dates: start: 201307
  14. CLONIDINE [Concomitant]
     Indication: HYPERTENSION
     Route: 048
  15. HYDRALAZINE [Concomitant]
     Indication: HYPERTENSION
     Route: 048
  16. ESTRADIOL [Concomitant]
     Indication: HORMONE REPLACEMENT THERAPY
     Route: 048

REACTIONS (21)
  - Cholelithiasis [Unknown]
  - Pneumonia [Recovered/Resolved]
  - Post procedural haemorrhage [Unknown]
  - Suture rupture [Unknown]
  - Heart valve incompetence [Unknown]
  - Cardiac murmur [Unknown]
  - Dyspnoea [Unknown]
  - Bronchitis [Recovered/Resolved]
  - Pyrexia [Recovered/Resolved]
  - Asthenia [Not Recovered/Not Resolved]
  - Eructation [Not Recovered/Not Resolved]
  - Chest discomfort [Not Recovered/Not Resolved]
  - Herpes zoster [Not Recovered/Not Resolved]
  - Pleurisy [Recovered/Resolved]
  - Pleuritic pain [Unknown]
  - Blood pressure increased [Not Recovered/Not Resolved]
  - Infection [Unknown]
  - Hypersensitivity [Unknown]
  - Nausea [Unknown]
  - Drug dose omission [Unknown]
  - Drug ineffective [Unknown]
